FAERS Safety Report 5915581-6 (Version None)
Quarter: 2008Q4

REPORT INFORMATION
  Report Type: 
  Country: None (occurrence: None)
  Receive Date: 20081010
  Receipt Date: 20080903
  Transmission Date: 20090506
  Serious: No
  Sender: FDA-Public Use
  Company Number: A0745681A

PATIENT
  Age: 53 Year
  Sex: Female

DRUGS (5)
  1. TYKERB [Suspect]
     Indication: BREAST CANCER
     Dosage: 5TAB PER DAY
     Dates: start: 20080819
  2. DILAUDID [Concomitant]
  3. PREDNISONE TAB [Concomitant]
  4. BLOOD THINNER [Concomitant]
  5. PROTONIX [Concomitant]

REACTIONS (7)
  - ASTHENIA [None]
  - COUGH [None]
  - DIARRHOEA [None]
  - DYSPNOEA [None]
  - FATIGUE [None]
  - NAUSEA [None]
  - PAROSMIA [None]
